FAERS Safety Report 23012388 (Version 2)
Quarter: 2023Q4

REPORT INFORMATION
  Report Type: Spontaneous
  Country: US (occurrence: US)
  Receive Date: 20230930
  Receipt Date: 20231011
  Transmission Date: 20240110
  Serious: Yes (Other)
  Sender: FDA-Public Use
  Company Number: US-JNJFOC-20230947500

PATIENT
  Sex: Female

DRUGS (1)
  1. IMODIUM [Suspect]
     Active Substance: LOPERAMIDE HYDROCHLORIDE
     Indication: Overflow diarrhoea
     Dosage: ONCE A DAY, TOOK ONE
     Route: 048
     Dates: start: 202308

REACTIONS (5)
  - Foreign body in throat [Unknown]
  - Product complaint [Unknown]
  - Oropharyngeal pain [Not Recovered/Not Resolved]
  - Throat irritation [Unknown]
  - Abdominal discomfort [Unknown]

NARRATIVE: CASE EVENT DATE: 20230918
